FAERS Safety Report 8457087-9 (Version None)
Quarter: 2012Q2

REPORT INFORMATION
  Report Type: 
  Country: None (occurrence: None)
  Receive Date: 20120621
  Receipt Date: 20120607
  Transmission Date: 20120825
  Serious: Yes (Hospitalization, Disabling)
  Sender: FDA-Public Use
  Company Number: GB-GE HEALTHCARE MEDICAL DIAGNOSTICS-OMPQ-UK-0105S-0093

PATIENT
  Age: 52 Year
  Sex: Female
  Weight: 50 kg

DRUGS (7)
  1. OMNIPAQUE 300 [Suspect]
     Indication: COLON CANCER
     Route: 042
     Dates: start: 19980101, end: 19980101
  2. IOPAMIDOL [Suspect]
     Indication: COLON CANCER
     Route: 042
     Dates: start: 19980101, end: 19980101
  3. IOPAMIDOL [Suspect]
     Indication: METASTASES TO LIVER
     Route: 042
     Dates: start: 19980101, end: 19980101
  4. AZATHIOPRINE [Concomitant]
     Dosage: 2 MG/KG PER DAY
  5. BLAND EMOLLIENTS [Concomitant]
  6. OMNIPAQUE 300 [Suspect]
     Indication: METASTASES TO LIVER
  7. RAZOXANE [Concomitant]
     Dosage: 1.5 MG/KG PER DAY

REACTIONS (2)
  - PSORIASIS [None]
  - ERYTHRODERMIC PSORIASIS [None]
